FAERS Safety Report 5761367-5 (Version None)
Quarter: 2008Q2

REPORT INFORMATION
  Report Type: 
  Country: None (occurrence: None)
  Receive Date: 20080606
  Receipt Date: 20080603
  Transmission Date: 20081010
  Serious: Yes (Life-Threatening, Hospitalization)
  Sender: FDA-Public Use
  Company Number: PL-BRISTOL-MYERS SQUIBB COMPANY-14153357

PATIENT
  Age: 30 Year
  Sex: Male
  Weight: 70 kg

DRUGS (3)
  1. ABILIFY [Suspect]
     Indication: SCHIZOPHRENIA, PARANOID TYPE
     Route: 048
     Dates: start: 20080330, end: 20080411
  2. RISPOLEPT [Suspect]
     Dates: start: 20080302
  3. RELANIUM [Suspect]
     Dates: start: 20080302

REACTIONS (1)
  - ELECTROCARDIOGRAM QT PROLONGED [None]
